FAERS Safety Report 5036026-7 (Version None)
Quarter: 2006Q2

REPORT INFORMATION
  Report Type: 
  Country: None (occurrence: None)
  Receive Date: 20060526
  Receipt Date: 20060228
  Transmission Date: 20061013
  Serious: Yes (Hospitalization)
  Sender: FDA-Public Use
  Company Number: WAES 0601USA01520

PATIENT
  Age: 88 Year
  Sex: Female
  Weight: 63.5036 kg

DRUGS (8)
  1. VYTORIN [Suspect]
     Indication: BLOOD CHOLESTEROL INCREASED
     Dosage: 10-40 MG DAILY PO
     Route: 048
     Dates: start: 20040901, end: 20051201
  2. VYTORIN [Suspect]
     Indication: HYPERLIPIDAEMIA
     Dosage: 10-40 MG DAILY PO
     Route: 048
     Dates: start: 20040901, end: 20051201
  3. AVANDIA [Concomitant]
  4. SYNTHROID [Concomitant]
  5. ASPIRIN [Concomitant]
  6. FUROSEMIDE [Concomitant]
  7. POTASSIUM CHLORIDE [Concomitant]
  8. VITAMINS (UNSPECIFIED) [Concomitant]

REACTIONS (7)
  - BLOOD GLUCOSE INCREASED [None]
  - DIVERTICULUM INTESTINAL [None]
  - GASTRITIS [None]
  - OESOPHAGEAL SPASM [None]
  - PERNICIOUS ANAEMIA [None]
  - PNEUMONIA [None]
  - RHABDOMYOLYSIS [None]
